FAERS Safety Report 7525905-4 (Version None)
Quarter: 2011Q2

REPORT INFORMATION
  Report Type: 
  Country: None (occurrence: None)
  Receive Date: 20110606
  Receipt Date: 20110526
  Transmission Date: 20111010
  Serious: Yes (Other)
  Sender: FDA-Public Use
  Company Number: B0719804A

PATIENT
  Age: 3 Year
  Sex: Male
  Weight: 11.7 kg

DRUGS (5)
  1. LAMICTAL [Suspect]
     Indication: EPILEPSY
     Dosage: 2MG TWICE PER DAY
     Route: 048
  2. SELENICA-R [Concomitant]
     Route: 048
  3. LAMICTAL [Suspect]
     Dosage: 26MG PER DAY
     Route: 048
     Dates: end: 20100922
  4. VALPROIC ACID [Suspect]
     Route: 048
  5. LAMICTAL [Suspect]
     Dosage: 32MG PER DAY
     Route: 048
     Dates: start: 20100923

REACTIONS (3)
  - DRUG INTERACTION [None]
  - EPILEPSY [None]
  - DRUG LEVEL DECREASED [None]
